FAERS Safety Report 6991666-0 (Version None)
Quarter: 2010Q3

REPORT INFORMATION
  Report Type: 
  Country: None (occurrence: None)
  Receive Date: 20100915
  Receipt Date: 20100915
  Transmission Date: 20110219
  Serious: Yes (Other)
  Sender: FDA-Public Use
  Company Number: None

PATIENT
  Sex: Female
  Weight: 76.2043 kg

DRUGS (4)
  1. OXYCODONE HCL [Suspect]
     Indication: ARTHRALGIA
     Dosage: R OXICODONE 60MG Q.I.D. ORAL
     Route: 048
     Dates: start: 20080101
  2. OXYCODONE HCL [Suspect]
     Indication: ARTHRALGIA
     Dosage: OXYCONTIN 160MG (80MG X 2) B.I.D. ORAL
     Route: 048
     Dates: start: 20080101
  3. DETROL LA [Concomitant]
  4. LIDODERM [Concomitant]

REACTIONS (7)
  - ABDOMINAL DISCOMFORT [None]
  - ARTHRITIS [None]
  - DIARRHOEA [None]
  - DRUG EFFECT DECREASED [None]
  - DRUG WITHDRAWAL SYNDROME [None]
  - NAUSEA [None]
  - VOMITING [None]
